FAERS Safety Report 9729273 (Version 2)
Quarter: 2014Q1

REPORT INFORMATION
  Report Type: Spontaneous
  Country: IT (occurrence: IT)
  Receive Date: 20131204
  Receipt Date: 20140120
  Transmission Date: 20141002
  Serious: Yes (Death, Other)
  Sender: FDA-Public Use
  Company Number: IT-BRISTOL-MYERS SQUIBB COMPANY-19844679

PATIENT
  Age: 77 Year
  Sex: Male

DRUGS (12)
  1. COUMADIN TABS 5 MG [Suspect]
     Indication: ATRIAL FIBRILLATION
     Route: 048
     Dates: start: 20100101, end: 20131014
  2. FUROSEMIDE [Concomitant]
     Route: 048
  3. CARVEDILOL [Concomitant]
     Route: 048
  4. SIMVASTATIN [Concomitant]
     Route: 048
  5. ENALAPRIL MALEATE [Concomitant]
  6. LANOXIN [Concomitant]
     Dosage: TABS
     Dates: start: 20100101, end: 20131014
  7. ALDACTONE [Concomitant]
     Dosage: CAPS
     Route: 048
  8. NOVONORM [Concomitant]
     Dosage: TABS?2.0 MG TABS DOSAGE/3/UNIT/ORALLY
     Route: 048
  9. TRINIPLAS [Concomitant]
     Route: 062
  10. XATRAL [Concomitant]
     Dosage: TABS
  11. PIRACETAM [Concomitant]
  12. SIMVASTATIN [Concomitant]

REACTIONS (3)
  - Pulmonary embolism [Fatal]
  - Contusion [Recovering/Resolving]
  - Hypocoagulable state [Unknown]
